FAERS Safety Report 9033585 (Version 1)
Quarter: 2013Q1

REPORT INFORMATION
  Report Type: Spontaneous
  Country: US (occurrence: US)
  Receive Date: 20130128
  Receipt Date: 20130128
  Transmission Date: 20140127
  Serious: No
  Sender: FDA-Public Use
  Company Number: US-ASTRAZENECA-2013SE03175

PATIENT
  Age: 68 Year
  Sex: Female
  Weight: 49.9 kg

DRUGS (2)
  1. SYMBICORT [Suspect]
     Indication: CHRONIC OBSTRUCTIVE PULMONARY DISEASE
     Dosage: 2 PUFFS BID
     Route: 055
  2. SINGULAIR [Concomitant]
     Indication: HYPERSENSITIVITY
     Route: 050

REACTIONS (4)
  - Dyspnoea [Recovered/Resolved]
  - Increased upper airway secretion [Recovered/Resolved]
  - Heart rate increased [Recovered/Resolved]
  - Cough [Recovered/Resolved]
